FAERS Safety Report 8772373 (Version 2)
Quarter: 2012Q4

REPORT INFORMATION
  Report Type: Report from Study
  Country: FR (occurrence: FR)
  Receive Date: 20120905
  Receipt Date: 20121128
  Transmission Date: 20130627
  Serious: Yes (Death, Other)
  Sender: FDA-Public Use
  Company Number: PHHY2012FR076753

PATIENT
  Age: 76 Year
  Sex: Male

DRUGS (4)
  1. EVEROLIMUS [Suspect]
     Indication: RENAL CELL CARCINOMA
     Dosage: 5 mg, QD
     Route: 048
     Dates: start: 20110527, end: 20110628
  2. EVEROLIMUS [Suspect]
     Dosage: 10 mg, QD
     Route: 048
     Dates: start: 20110628, end: 20110826
  3. EVEROLIMUS [Suspect]
     Dosage: 5 mg, QD
     Route: 048
     Dates: start: 20110826, end: 20110914
  4. EVEROLIMUS [Suspect]
     Dates: start: 20110914

REACTIONS (2)
  - Death [Fatal]
  - Metastases to central nervous system [Unknown]
